FAERS Safety Report 15291393 (Version 2)
Quarter: 2020Q1

REPORT INFORMATION
  Report Type: Spontaneous
  Country: US (occurrence: US)
  Receive Date: 20180817
  Receipt Date: 20200115
  Transmission Date: 20200409
  Serious: Yes (Hospitalization)
  Sender: FDA-Public Use
  Company Number: US-PFIZER INC-2018237770

PATIENT
  Age: 54 Year
  Sex: Female

DRUGS (1)
  1. XELJANZ XR [Suspect]
     Active Substance: TOFACITINIB CITRATE
     Indication: RHEUMATOID ARTHRITIS
     Dosage: 11 MG, DAILY
     Route: 048
     Dates: start: 201801

REACTIONS (5)
  - Somnolence [Unknown]
  - Immune system disorder [Unknown]
  - Cerebrovascular accident [Unknown]
  - Incoherent [Unknown]
  - Amnesia [Unknown]

NARRATIVE: CASE EVENT DATE: 201801
